FAERS Safety Report 19160106 (Version 3)
Quarter: 2021Q2

REPORT INFORMATION
  Report Type: Report from Study
  Country: US (occurrence: US)
  Receive Date: 20210420
  Receipt Date: 20210426
  Transmission Date: 20210717
  Serious: No
  Sender: FDA-Public Use
  Company Number: NVSC2021US083899

PATIENT
  Sex: Female

DRUGS (1)
  1. ZARXIO [Suspect]
     Active Substance: FILGRASTIM-SNDZ
     Indication: PRODUCT USED FOR UNKNOWN INDICATION
     Dosage: UNK, ZARXIO 300 MCG/0.5ML 10 SYRINGES
     Route: 065

REACTIONS (3)
  - Arthralgia [Unknown]
  - Pain in extremity [Unknown]
  - General physical health deterioration [Unknown]
